FAERS Safety Report 9905171 (Version 1)
Quarter: 2014Q1

REPORT INFORMATION
  Report Type: Spontaneous
  Country: US (occurrence: US)
  Receive Date: 20140218
  Receipt Date: 20140218
  Transmission Date: 20141002
  Serious: Yes (Disabling, Other)
  Sender: FDA-Public Use
  Company Number: US-SA-2014SA018697

PATIENT
  Age: 45 Year
  Sex: Female

DRUGS (2)
  1. LANTUS SOLOSTAR [Suspect]
     Indication: TYPE 2 DIABETES MELLITUS
     Dosage: DOSE:18 UNIT(S)
     Route: 065
     Dates: start: 2013
  2. SOLOSTAR [Concomitant]
     Dates: start: 2013

REACTIONS (5)
  - Blindness [Unknown]
  - Visual impairment [Unknown]
  - Cerebrovascular accident [Unknown]
  - Speech disorder [Unknown]
  - Cardiac failure congestive [Unknown]
